FAERS Safety Report 6162928-4 (Version None)
Quarter: 2009Q2

REPORT INFORMATION
  Report Type: 
  Country: None (occurrence: None)
  Receive Date: 20090417
  Receipt Date: 20090406
  Transmission Date: 20091009
  Serious: Yes (Hospitalization)
  Sender: FDA-Public Use
  Company Number: 2009AP001393

PATIENT
  Age: 82 Year
  Sex: Male

DRUGS (12)
  1. PAROXETINE HCL [Suspect]
     Indication: DEPRESSION
     Dosage: 40 MG; PO;QD
     Route: 048
     Dates: start: 20090127, end: 20090309
  2. CARVEDILOL [Suspect]
     Indication: DRUG USE FOR UNKNOWN INDICATION
     Dosage: PO
     Route: 048
  3. CLARITHROMYCIN [Suspect]
     Indication: DRUG USE FOR UNKNOWN INDICATION
     Dosage: PO
     Route: 048
  4. DIAZEPAM [Suspect]
     Indication: DRUG USE FOR UNKNOWN INDICATION
  5. DIGOXIN [Suspect]
     Indication: DRUG USE FOR UNKNOWN INDICATION
     Dosage: PO
     Route: 048
  6. FUROSEMIDE [Suspect]
     Indication: DRUG USE FOR UNKNOWN INDICATION
  7. SALMETEROL XINAFOATE (SALMETEROL XINAFOATE) [Suspect]
     Indication: DRUG USE FOR UNKNOWN INDICATION
     Dosage: INH
     Route: 055
  8. SULPIRIDE (SULPIRIDE) [Suspect]
     Indication: DRUG USE FOR UNKNOWN INDICATION
  9. THEOPHYLLINE [Suspect]
     Indication: DRUG USE FOR UNKNOWN INDICATION
     Dosage: PO
     Route: 048
  10. TIOTROPIUM BROMIDE (TIOTROPIUM BROMIDE) [Suspect]
     Indication: DRUG USE FOR UNKNOWN INDICATION
     Dosage: INH
     Route: 055
  11. VERAPAMIL [Suspect]
     Indication: DRUG USE FOR UNKNOWN INDICATION
  12. DANTROLENE SODIUM [Concomitant]

REACTIONS (2)
  - CONVULSION [None]
  - NEUROLEPTIC MALIGNANT SYNDROME [None]
